FAERS Safety Report 6829237-9 (Version None)
Quarter: 2010Q3

REPORT INFORMATION
  Report Type: 
  Country: None (occurrence: None)
  Receive Date: 20100709
  Receipt Date: 20070308
  Transmission Date: 20110219
  Serious: No
  Sender: FDA-Public Use
  Company Number: US-PFIZER INC-2007018967

PATIENT
  Sex: Female
  Weight: 83.01 kg

DRUGS (12)
  1. CHANTIX [Suspect]
     Indication: SMOKING CESSATION THERAPY
     Dates: start: 20070224
  2. KLONOPIN [Concomitant]
  3. TRILEPTAL [Concomitant]
  4. ZYRTEC [Concomitant]
  5. LEXAPRO [Concomitant]
  6. COMBIVENT [Concomitant]
  7. HYDROCODONE BITARTRATE [Concomitant]
  8. VERAPAMIL [Concomitant]
  9. COZAAR [Concomitant]
  10. PREVACID [Concomitant]
  11. EFFEXOR [Concomitant]
  12. ADVAIR DISKUS 100/50 [Concomitant]

REACTIONS (2)
  - NAUSEA [None]
  - VOMITING [None]
